FAERS Safety Report 9293687 (Version 1)
Quarter: 2013Q2

REPORT INFORMATION
  Report Type: Spontaneous
  Country: DE (occurrence: GB)
  Receive Date: 20130516
  Receipt Date: 20130516
  Transmission Date: 20140414
  Serious: Yes (Life-Threatening)
  Sender: FDA-Public Use
  Company Number: GB-FRI-1000045184

PATIENT
  Age: 59 Year
  Sex: Male
  Weight: 74 kg

DRUGS (16)
  1. MEMANTINE [Suspect]
     Indication: DEMENTIA ALZHEIMER^S TYPE
     Dosage: 5 MG
     Route: 048
     Dates: start: 20130424, end: 201304
  2. MEMANTINE [Suspect]
     Dosage: 20 MG
     Route: 048
     Dates: start: 201304, end: 20130430
  3. CETRABEN EMOLLIENT CREAM [Concomitant]
  4. CLOTRIMAZOLE [Concomitant]
  5. CODEINE [Concomitant]
  6. FLUCLOXACILLIN [Concomitant]
  7. FUSIDIC ACID [Concomitant]
  8. LOPERAMIDE [Concomitant]
  9. LORAZEPAM [Concomitant]
  10. METRONIDAZOLE [Concomitant]
  11. PARACETAMOL [Concomitant]
  12. PROMETHAZINE [Concomitant]
  13. QUETIAPINE [Concomitant]
  14. SODIUM [Concomitant]
  15. TITANIUM [Concomitant]
  16. ZOPICLONE [Concomitant]

REACTIONS (5)
  - Grand mal convulsion [Recovering/Resolving]
  - Cyanosis [Unknown]
  - Dyspnoea [Unknown]
  - Pulse pressure decreased [Unknown]
  - Unresponsive to stimuli [Unknown]
